FAERS Safety Report 20004052 (Version 2)
Quarter: 2021Q4

REPORT INFORMATION
  Report Type: Spontaneous
  Country: US (occurrence: None)
  Receive Date: 20211028
  Receipt Date: 20211124
  Transmission Date: 20220303
  Serious: No
  Sender: FDA-Public Use
  Company Number: 2021A752245

PATIENT
  Sex: Male
  Weight: 106.6 kg

DRUGS (2)
  1. SYMBICORT [Suspect]
     Active Substance: BUDESONIDE\FORMOTEROL FUMARATE DIHYDRATE
     Indication: Asthma
     Dosage: 160/4.5MG, 2 PUFFS, TWO TIMES A DAY
     Route: 055
  2. BUDESONIDE\FORMOTEROL FUMARATE [Suspect]
     Active Substance: BUDESONIDE\FORMOTEROL FUMARATE
     Route: 065
     Dates: start: 2020

REACTIONS (5)
  - Asthma [Unknown]
  - Ageusia [Unknown]
  - Lung disorder [Unknown]
  - Drug ineffective [Unknown]
  - Product packaging quantity issue [Unknown]
